FAERS Safety Report 7699825-9 (Version None)
Quarter: 2011Q3

REPORT INFORMATION
  Report Type: 
  Country: None (occurrence: None)
  Receive Date: 20110822
  Receipt Date: 20110811
  Transmission Date: 20111222
  Serious: No
  Sender: FDA-Public Use
  Company Number: US-BIOGENIDEC-2011BI030510

PATIENT
  Age: 63 Year
  Sex: Female

DRUGS (1)
  1. AVONEX [Suspect]
     Indication: MULTIPLE SCLEROSIS
     Route: 030
     Dates: start: 20070811

REACTIONS (6)
  - MUSCLE SPASMS [None]
  - PAIN [None]
  - MULTIPLE SCLEROSIS [None]
  - EXOSTOSIS [None]
  - ARTHRITIS [None]
  - FALL [None]
